FAERS Safety Report 7437424-4 (Version None)
Quarter: 2011Q2

REPORT INFORMATION
  Report Type: 
  Country: None (occurrence: None)
  Receive Date: 20110426
  Receipt Date: 20100719
  Transmission Date: 20111010
  Serious: No
  Sender: FDA-Public Use
  Company Number: US-PFIZER INC-2010053213

PATIENT
  Sex: Female
  Weight: 54 kg

DRUGS (9)
  1. XOPENEX [Concomitant]
     Dosage: UNK
  2. MONTELUKAST [Concomitant]
     Dosage: UNK
  3. SYMBICORT [Concomitant]
     Dosage: UNK
  4. ESTRING [Suspect]
     Indication: VULVOVAGINAL DRYNESS
     Dosage: UNK, CYCLIC(EVERY 90 DAYS)
     Route: 067
     Dates: start: 20080601
  5. FLONASE [Concomitant]
     Indication: SEASONAL ALLERGY
     Dosage: UNK
     Route: 045
  6. ESTRING [Suspect]
     Dosage: UNK
     Dates: start: 20080601
  7. LORAZEPAM [Concomitant]
     Dosage: 1 MG, UNK
  8. ZYRTEC [Concomitant]
     Indication: SEASONAL ALLERGY
     Dosage: UNK
  9. MEDROL [Concomitant]
     Dosage: UNK

REACTIONS (1)
  - DRUG INEFFECTIVE [None]
